FAERS Safety Report 9836134 (Version 14)
Quarter: 2019Q1

REPORT INFORMATION
  Report Type: Report from Study
  Country: CA (occurrence: CA)
  Receive Date: 20140123
  Receipt Date: 20190115
  Transmission Date: 20190418
  Serious: Yes (Hospitalization, Other)
  Sender: FDA-Public Use
  Company Number: CA-ROCHE-1332325

PATIENT
  Age: 72 Year
  Sex: Female
  Weight: 79 kg

DRUGS (19)
  1. CELEBREX [Concomitant]
     Active Substance: CELECOXIB
  2. LEUCOVORIN. [Concomitant]
     Active Substance: LEUCOVORIN
  3. OMEPRAZOLE. [Concomitant]
     Active Substance: OMEPRAZOLE
  4. ACTEMRA [Suspect]
     Active Substance: TOCILIZUMAB
     Route: 042
     Dates: start: 20131106
  5. PREDNISONE. [Concomitant]
     Active Substance: PREDNISONE
  6. COUMADIN [Concomitant]
     Active Substance: WARFARIN SODIUM
  7. ACTEMRA [Suspect]
     Active Substance: TOCILIZUMAB
     Indication: RHEUMATOID ARTHRITIS
     Route: 042
     Dates: start: 20130911
  8. METHOTREXATE. [Concomitant]
     Active Substance: METHOTREXATE
  9. DEXILANT [Concomitant]
     Active Substance: DEXLANSOPRAZOLE
  10. ZANTAC [Concomitant]
     Active Substance: RANITIDINE HYDROCHLORIDE
  11. ACTEMRA [Suspect]
     Active Substance: TOCILIZUMAB
     Dosage: 21/JAN/2014 (SHE DID NOT RECEIVE HER TOCILIZUMAB INFUSION AND WAS SCHEDULED TO RECEIVE 20 DAYS LATE)
     Route: 042
     Dates: start: 20131205
  12. ATIVAN [Concomitant]
     Active Substance: LORAZEPAM
  13. ACTEMRA [Suspect]
     Active Substance: TOCILIZUMAB
     Route: 042
     Dates: start: 20141001
  14. ACTEMRA [Suspect]
     Active Substance: TOCILIZUMAB
     Route: 042
     Dates: start: 20150225
  15. HYDROXYCHLOROQUINE [Concomitant]
     Active Substance: HYDROXYCHLOROQUINE
  16. TRAMACET [Concomitant]
     Active Substance: ACETAMINOPHEN\TRAMADOL
  17. ACTEMRA [Suspect]
     Active Substance: TOCILIZUMAB
     Route: 042
     Dates: start: 20150707
  18. ACTEMRA [Suspect]
     Active Substance: TOCILIZUMAB
     Route: 042
     Dates: start: 20131008
  19. ADVAIR HFA [Concomitant]
     Active Substance: FLUTICASONE PROPIONATE\SALMETEROL XINAFOATE

REACTIONS (9)
  - Spinal fracture [Not Recovered/Not Resolved]
  - Gait disturbance [Not Recovered/Not Resolved]
  - Weight increased [Not Recovered/Not Resolved]
  - Pneumonia [Recovered/Resolved]
  - Back pain [Not Recovered/Not Resolved]
  - Influenza [Recovering/Resolving]
  - Abscess limb [Recovered/Resolved]
  - Weight decreased [Unknown]
  - Skin ulcer [Unknown]

NARRATIVE: CASE EVENT DATE: 20131213
